FAERS Safety Report 10156085 (Version 1)
Quarter: 2014Q2

REPORT INFORMATION
  Report Type: Report from Study
  Country: US (occurrence: US)
  Receive Date: 20140506
  Receipt Date: 20140506
  Transmission Date: 20141212
  Serious: Yes (Other)
  Sender: FDA-Public Use
  Company Number: PHEH2014US008804

PATIENT
  Age: 13 Year
  Sex: Female

DRUGS (2)
  1. TOBI PODHALER [Suspect]
     Indication: CYSTIC FIBROSIS
     Dosage: 112 MG, TWICE A DAY
     Route: 055
     Dates: start: 201309, end: 201310
  2. TOBI PODHALER [Suspect]
     Indication: PANCREATIC DISORDER

REACTIONS (3)
  - Cystic fibrosis [Not Recovered/Not Resolved]
  - Condition aggravated [Not Recovered/Not Resolved]
  - Pseudomonas infection [Recovered/Resolved]
